FAERS Safety Report 21701995 (Version 1)
Quarter: 2022Q4

REPORT INFORMATION
  Report Type: Spontaneous
  Country: FR (occurrence: FR)
  Receive Date: 20221208
  Receipt Date: 20221208
  Transmission Date: 20230112
  Serious: Yes (Death, Other)
  Sender: FDA-Public Use
  Company Number: FR-JNJFOC-20211055898

PATIENT
  Age: 80 Year
  Sex: Female

DRUGS (2)
  1. DEXAMETHASONE [Suspect]
     Active Substance: DEXAMETHASONE
     Indication: Plasma cell myeloma
     Dosage: 1 TIME EVERY 1 WEEK, 4 WEEKS/CYCLE
     Route: 065
     Dates: end: 20200207
  2. VELCADE [Suspect]
     Active Substance: BORTEZOMIB
     Indication: Plasma cell myeloma
     Dosage: 1 TIME EVERY 1 WEEK, 4 WEEKS/CYCLE
     Route: 065
     Dates: end: 20200207

REACTIONS (2)
  - Cardiac failure [Unknown]
  - Plasma cell myeloma [Fatal]

NARRATIVE: CASE EVENT DATE: 20200210
